FAERS Safety Report 12280802 (Version 1)
Quarter: 2016Q2

REPORT INFORMATION
  Report Type: Spontaneous
  Country: US (occurrence: US)
  Receive Date: 20160419
  Receipt Date: 20160419
  Transmission Date: 20160815
  Serious: No
  Sender: FDA-Public Use
  Company Number: US-TEVA-630004USA

PATIENT
  Sex: Male

DRUGS (2)
  1. ACICLOVIR [Suspect]
     Active Substance: ACYCLOVIR
     Indication: HERPES ZOSTER
     Dates: start: 20160122
  2. NOVOCAIN [Interacting]
     Active Substance: PROCAINE HYDROCHLORIDE
     Indication: ENDODONTIC PROCEDURE
     Dates: start: 20160122, end: 20160122

REACTIONS (4)
  - Blood pressure increased [Unknown]
  - Blood glucose increased [Unknown]
  - Drug interaction [Unknown]
  - Drug effect incomplete [Unknown]

NARRATIVE: CASE EVENT DATE: 201601
